FAERS Safety Report 4574267-3 (Version None)
Quarter: 2005Q1

REPORT INFORMATION
  Report Type: 
  Country: None (occurrence: None)
  Receive Date: 20050208
  Receipt Date: 20041124
  Transmission Date: 20050727
  Serious: No
  Sender: FDA-Public Use
  Company Number: 200418781US

PATIENT
  Age: 73 Year
  Sex: Male

DRUGS (5)
  1. PAXIL [Suspect]
     Indication: MAJOR DEPRESSION
     Dosage: 40MG PER DAY
     Route: 048
  2. FEXOFENADINE HCL [Suspect]
     Indication: DRUG USE FOR UNKNOWN INDICATION
     Route: 048
  3. PREDNISONE [Suspect]
     Indication: DRUG USE FOR UNKNOWN INDICATION
  4. SYNTHROID [Concomitant]
  5. DOXEPIN HCL [Concomitant]

REACTIONS (7)
  - DERMATITIS ATOPIC [None]
  - EJACULATION FAILURE [None]
  - ERECTILE DYSFUNCTION [None]
  - MUSCLE SPASMS [None]
  - PRURITUS [None]
  - SEMINAL VESICULAR DISORDER [None]
  - SOMNOLENCE [None]
